FAERS Safety Report 7430006-X (Version None)
Quarter: 2011Q2

REPORT INFORMATION
  Report Type: 
  Country: None (occurrence: None)
  Receive Date: 20110421
  Receipt Date: 20110413
  Transmission Date: 20111010
  Serious: Yes (Other)
  Sender: FDA-Public Use
  Company Number: US-US-EMD SERONO, INC.-7013653

PATIENT
  Sex: Female

DRUGS (3)
  1. REBIF [Suspect]
     Indication: MULTIPLE SCLEROSIS
     Route: 058
     Dates: start: 20100614
  2. TYSABRI [Suspect]
  3. IBUPROFEN [Concomitant]
     Indication: BACK PAIN
     Dates: start: 20010101

REACTIONS (8)
  - HUMAN PAPILLOMA VIRUS TEST POSITIVE [None]
  - RENAL IMPAIRMENT [None]
  - SINUSITIS [None]
  - INJECTION SITE PAIN [None]
  - MUSCLE SPASMS [None]
  - URINARY TRACT INFECTION [None]
  - INJECTION SITE ERYTHEMA [None]
  - CERVICAL DYSPLASIA [None]
